FAERS Safety Report 6167132-1 (Version None)
Quarter: 2009Q2

REPORT INFORMATION
  Report Type: 
  Country: None (occurrence: None)
  Receive Date: 20090424
  Receipt Date: 20090415
  Transmission Date: 20091009
  Serious: Yes (Death)
  Sender: FDA-Public Use
  Company Number: US-KINGPHARMUSA00001-K200900438

PATIENT

DRUGS (1)
  1. SYNERCID [Suspect]
     Indication: SEPSIS
     Dosage: UNK
     Dates: start: 20090301

REACTIONS (3)
  - DISEASE PROGRESSION [None]
  - DRUG INEFFECTIVE [None]
  - SEPSIS [None]
